FAERS Safety Report 5629944-X (Version None)
Quarter: 2008Q1

REPORT INFORMATION
  Report Type: 
  Country: None (occurrence: None)
  Receive Date: 20080218
  Receipt Date: 20080205
  Transmission Date: 20080703
  Serious: Yes (Congenital Anomaly)
  Sender: FDA-Public Use
  Company Number: GB-ROCHE-430979

PATIENT
  Sex: Female
  Weight: 2.6 kg

DRUGS (1)
  1. ROACCUTANE [Suspect]
     Indication: ACNE
     Dates: start: 20050715, end: 20051229

REACTIONS (3)
  - CEREBELLAR HYPOPLASIA [None]
  - CEREBROSPINAL FLUID RETENTION [None]
  - ILL-DEFINED DISORDER [None]
